FAERS Safety Report 19997828 (Version 2)
Quarter: 2021Q4

REPORT INFORMATION
  Report Type: Spontaneous
  Country: US (occurrence: US)
  Receive Date: 20211026
  Receipt Date: 20211122
  Transmission Date: 20220303
  Serious: No
  Sender: FDA-Public Use
  Company Number: US-009507513-2110USA001460

PATIENT
  Age: 7 Day
  Weight: 1.539 kg

DRUGS (4)
  1. INVANZ [Suspect]
     Active Substance: ERTAPENEM SODIUM
     Indication: Staphylococcal bacteraemia
     Dosage: 15 MG/KG/DOSE, Q12H
  2. VANCOMYCIN [Concomitant]
     Active Substance: VANCOMYCIN
     Indication: Sepsis
  3. CEFEPIME [Concomitant]
     Active Substance: CEFEPIME HYDROCHLORIDE
     Indication: Sepsis
  4. CEFAZOLIN [Concomitant]
     Active Substance: CEFAZOLIN
     Indication: Staphylococcal infection
     Dosage: 100 MG/KG/DAY DIVIDED Q 8 HRS

REACTIONS (3)
  - Off label use [Unknown]
  - Product use issue [Unknown]
  - No adverse event [Unknown]
